FAERS Safety Report 17788461 (Version 2)
Quarter: 2020Q3

REPORT INFORMATION
  Report Type: Spontaneous
  Country: US (occurrence: US)
  Receive Date: 20200514
  Receipt Date: 20200912
  Transmission Date: 20201102
  Serious: Yes (Death, Hospitalization, Other)
  Sender: FDA-Public Use
  Company Number: US-B.I. PHARMACEUTICALS,INC./RIDGEFIELD-2020-BI-023798

PATIENT
  Age: 89 Year
  Sex: Female

DRUGS (5)
  1. DEXAMETHASONE. [Concomitant]
     Active Substance: DEXAMETHASONE
     Indication: MACULAR DEGENERATION
     Dosage: 4 MG ONCE DAILY
     Route: 065
  2. ASPIRIN [ACETYLSALICYLIC ACID] [Concomitant]
     Active Substance: ASPIRIN
     Indication: ISCHAEMIC HEART DISEASE PROPHYLAXIS
     Dosage: 81 MG ONCE DAILY
     Route: 065
  3. GILOTRIF [Suspect]
     Active Substance: AFATINIB
     Indication: NON-SMALL CELL LUNG CANCER METASTATIC
     Route: 065
     Dates: start: 201612
  4. PROLENSA [Concomitant]
     Active Substance: BROMFENAC SODIUM
     Indication: MACULAR DEGENERATION
     Route: 065
  5. OXYMETHOLONE [Concomitant]
     Active Substance: OXYMETHOLONE
     Indication: PHYTOTHERAPY
     Route: 065

REACTIONS (11)
  - Brain cancer metastatic [Unknown]
  - Memory impairment [Unknown]
  - Seizure [Unknown]
  - Ligament sprain [Unknown]
  - Death [Fatal]
  - Fall [Recovered/Resolved]
  - Decubitus ulcer [Not Recovered/Not Resolved]
  - Urinary tract infection [Unknown]
  - Bedridden [Unknown]
  - Urinary incontinence [Unknown]
  - Nephrolithiasis [Unknown]

NARRATIVE: CASE EVENT DATE: 202002
